FAERS Safety Report 5142813-7 (Version None)
Quarter: 2006Q4

REPORT INFORMATION
  Report Type: 
  Country: None (occurrence: None)
  Receive Date: 20061102
  Receipt Date: 20061027
  Transmission Date: 20070319
  Serious: Yes (Life-Threatening)
  Sender: FDA-Public Use
  Company Number: US-MERCK-0610USA14850

PATIENT
  Age: 21 Month
  Sex: Male

DRUGS (1)
  1. SINGULAIR [Suspect]
     Indication: HYPERSENSITIVITY
     Route: 048
     Dates: start: 20060928, end: 20060930

REACTIONS (4)
  - BLISTER [None]
  - DYSPNOEA [None]
  - VASCULITIS [None]
  - VOMITING [None]
